FAERS Safety Report 6184880-8 (Version None)
Quarter: 2009Q2

REPORT INFORMATION
  Report Type: 
  Country: None (occurrence: None)
  Receive Date: 20090508
  Receipt Date: 20090428
  Transmission Date: 20091009
  Serious: Yes (Hospitalization, Disabling, Other)
  Sender: FDA-Public Use
  Company Number: US-MERCK-0806USA08534

PATIENT
  Age: 66 Year
  Sex: Female

DRUGS (4)
  1. FOSAMAX [Suspect]
     Indication: OSTEOPOROSIS
     Route: 048
     Dates: start: 19990101, end: 20050101
  2. FOSAMAX [Suspect]
     Indication: OSTEOPENIA
     Route: 048
     Dates: start: 19990101, end: 20050101
  3. HYZAAR [Concomitant]
     Indication: HYPERTENSION
     Route: 048
  4. SPIRONOLACTONE [Concomitant]
     Indication: HYPERTENSION
     Route: 065

REACTIONS (17)
  - ANAESTHETIC COMPLICATION [None]
  - ANXIETY [None]
  - COMPLEX REGIONAL PAIN SYNDROME [None]
  - DENTAL CARIES [None]
  - DEPRESSION [None]
  - EMOTIONAL DISTRESS [None]
  - GINGIVAL SWELLING [None]
  - HEADACHE [None]
  - JAW DISORDER [None]
  - MALOCCLUSION [None]
  - NECK PAIN [None]
  - OSTEONECROSIS [None]
  - PAIN IN JAW [None]
  - RESORPTION BONE INCREASED [None]
  - SENSITIVITY OF TEETH [None]
  - SLEEP APNOEA SYNDROME [None]
  - TEMPOROMANDIBULAR JOINT SYNDROME [None]
